FAERS Safety Report 6902897-X (Version None)
Quarter: 2010Q3

REPORT INFORMATION
  Report Type: 
  Country: None (occurrence: None)
  Receive Date: 20100803
  Receipt Date: 20080819
  Transmission Date: 20110219
  Serious: No
  Sender: FDA-Public Use
  Company Number: US-PFIZER INC-2008055031

PATIENT
  Sex: Female
  Weight: 63.6 kg

DRUGS (3)
  1. LYRICA [Suspect]
     Indication: FIBROMYALGIA
     Dates: start: 20070101, end: 20070101
  2. EFFEXOR [Concomitant]
  3. VICODIN [Concomitant]

REACTIONS (1)
  - PALPITATIONS [None]
